FAERS Safety Report 20408338 (Version 1)
Quarter: 2022Q1

REPORT INFORMATION
  Report Type: Spontaneous
  Country: US (occurrence: US)
  Receive Date: 20220201
  Receipt Date: 20220201
  Transmission Date: 20220423
  Serious: No
  Sender: FDA-Public Use
  Company Number: US-TEVA-2022-US-2002261

PATIENT
  Sex: Female

DRUGS (2)
  1. PREDNISONE [Suspect]
     Active Substance: PREDNISONE
     Route: 065
  2. UKONIQ [Suspect]
     Active Substance: UMBRALISIB TOSYLATE
     Route: 065

REACTIONS (2)
  - Visual impairment [Unknown]
  - Myalgia [Unknown]
